FAERS Safety Report 10091766 (Version 2)
Quarter: 2014Q2

REPORT INFORMATION
  Report Type: Spontaneous
  Country: US (occurrence: US)
  Receive Date: 20140421
  Receipt Date: 20140421
  Transmission Date: 20141212
  Serious: No
  Sender: FDA-Public Use
  Company Number: US-PURDUE-USA-2005-0019461

PATIENT
  Age: 47 Year
  Sex: Female

DRUGS (2)
  1. OXYIR CAPSULES 5 MG [Suspect]
     Indication: PAIN
     Dosage: 5 MG, UNK
     Route: 065
  2. UNKNOWN [Concomitant]

REACTIONS (6)
  - Weight increased [Unknown]
  - Urticaria [Unknown]
  - Hypersensitivity [Unknown]
  - Decreased appetite [Unknown]
  - Rash [Unknown]
  - Pruritus [Unknown]
